FAERS Safety Report 5014876-0 (Version None)
Quarter: 2006Q2

REPORT INFORMATION
  Report Type: 
  Country: None (occurrence: None)
  Receive Date: 20060412
  Receipt Date: 20050519
  Transmission Date: 20061013
  Serious: Yes (Hospitalization)
  Sender: FDA-Public Use
  Company Number: 2005-BP-07784BP

PATIENT
  Age: 74 Year
  Sex: Female

DRUGS (12)
  1. MOBIC [Suspect]
     Dosage: 15 MG (7.5 MG, 1 IN 1 D), NR
     Dates: start: 20050301, end: 20050401
  2. SLOW-K [Concomitant]
  3. SKELAXIN [Concomitant]
  4. PLAVIX [Concomitant]
  5. PROTONIX [Concomitant]
  6. CLONIDINE [Concomitant]
  7. PROZAC [Concomitant]
  8. DYAZIDE [Concomitant]
  9. AVAPRO [Concomitant]
  10. MULTIVITAMIN [Concomitant]
  11. VICODIN [Concomitant]
  12. FORTEO [Concomitant]

REACTIONS (7)
  - ABDOMINAL PAIN UPPER [None]
  - ANAEMIA [None]
  - ASTHENIA [None]
  - DIZZINESS POSTURAL [None]
  - FAECES DISCOLOURED [None]
  - GASTROINTESTINAL ULCER HAEMORRHAGE [None]
  - PEPTIC ULCER [None]
